FAERS Safety Report 19019237 (Version 1)
Quarter: 2021Q1

REPORT INFORMATION
  Report Type: Report from Study
  Country: CA (occurrence: CA)
  Receive Date: 20210316
  Receipt Date: 20210316
  Transmission Date: 20210420
  Serious: Yes (Other)
  Sender: FDA-Public Use
  Company Number: CA-PFIZER INC-2021234397

PATIENT
  Age: 62 Year
  Sex: Female

DRUGS (16)
  1. ERGOCALCIFEROL. [Concomitant]
     Active Substance: ERGOCALCIFEROL
  2. RISEDRONATE [Concomitant]
     Active Substance: RISEDRONATE SODIUM
     Dosage: UNK
     Route: 065
  3. TEMAZEPAM. [Concomitant]
     Active Substance: TEMAZEPAM
  4. RIVOTRIL [Concomitant]
     Active Substance: CLONAZEPAM
  5. ACTEMRA [Suspect]
     Active Substance: TOCILIZUMAB
     Indication: RHEUMATOID ARTHRITIS
     Dosage: UNK
     Route: 065
  6. COLACE [Concomitant]
     Active Substance: DOCUSATE SODIUM
  7. BISOPROLOL [Concomitant]
     Active Substance: BISOPROLOL
     Dosage: UNK
     Route: 065
  8. MORPHINE [Concomitant]
     Active Substance: MORPHINE
  9. PREDNISONE. [Concomitant]
     Active Substance: PREDNISONE
  10. SENOKOT [Concomitant]
     Active Substance: SENNOSIDES
     Dosage: UNK
     Route: 065
  11. PREMARIN [Concomitant]
     Active Substance: ESTROGENS, CONJUGATED
  12. RITUXIMAB. [Suspect]
     Active Substance: RITUXIMAB
     Indication: RHEUMATOID ARTHRITIS
     Dosage: 1000 MG, 1 EVERY 15 DAYS
     Route: 041
  13. CITALOPRAM [Concomitant]
     Active Substance: CITALOPRAM HYDROBROMIDE
  14. CYCLOBENZAPRINE HYDROCHLORIDE. [Concomitant]
     Active Substance: CYCLOBENZAPRINE HYDROCHLORIDE
  15. TOPAMAX [Concomitant]
     Active Substance: TOPIRAMATE
     Dosage: 25 MG, WEEKLY
     Route: 058
  16. CITALOPRAM HYDROBROMIDE. [Concomitant]
     Active Substance: CITALOPRAM HYDROBROMIDE
     Dosage: UNK
     Route: 065

REACTIONS (5)
  - Blood pressure systolic increased [Recovered/Resolved]
  - Arrhythmia [Recovered/Resolved]
  - Blood pressure fluctuation [Recovered/Resolved]
  - Infusion related reaction [Recovered/Resolved]
  - Chest pain [Recovered/Resolved]
